FAERS Safety Report 6721308-0 (Version None)
Quarter: 2010Q2

REPORT INFORMATION
  Report Type: 
  Country: None (occurrence: None)
  Receive Date: 20100512
  Receipt Date: 20100430
  Transmission Date: 20101027
  Serious: Yes (Death, Life-Threatening, Hospitalization, Other)
  Sender: FDA-Public Use
  Company Number: US-TYCO HEALTHCARE/MALLINCKRODT-T200901959

PATIENT
  Sex: Male

DRUGS (6)
  1. OPTIMARK [Suspect]
     Indication: NUCLEAR MAGNETIC RESONANCE IMAGING
     Dosage: UNK
     Dates: start: 20060415, end: 20060415
  2. OPTIMARK [Suspect]
     Indication: ANGIOGRAM
     Dosage: UNK
     Route: 042
     Dates: start: 20060416, end: 20060416
  3. MAGNEVIST [Suspect]
     Indication: NUCLEAR MAGNETIC RESONANCE IMAGING
     Dosage: UNK
     Dates: start: 20030116, end: 20030116
  4. MAGNEVIST [Suspect]
     Dosage: UNK
     Dates: start: 20060515, end: 20060515
  5. MAGNEVIST [Suspect]
     Dosage: UNK
     Dates: start: 20060517, end: 20060517
  6. MAGNEVIST [Suspect]
     Dosage: UNK
     Dates: start: 20060610, end: 20060610

REACTIONS (27)
  - ACUTE RESPIRATORY FAILURE [None]
  - ADJUSTMENT DISORDER [None]
  - ANAEMIA OF CHRONIC DISEASE [None]
  - ATRIAL FIBRILLATION [None]
  - CARDIAC OUTPUT DECREASED [None]
  - CARDIOGENIC SHOCK [None]
  - CHEST PAIN [None]
  - COAGULATION TEST ABNORMAL [None]
  - DEEP VEIN THROMBOSIS [None]
  - DIVERTICULUM INTESTINAL [None]
  - EMBOLISM [None]
  - HAEMATOCHEZIA [None]
  - HAEMORRHOIDS [None]
  - HYPERKALAEMIA [None]
  - MULTI-ORGAN FAILURE [None]
  - NEPHROGENIC SYSTEMIC FIBROSIS [None]
  - OFF LABEL USE [None]
  - ONYCHOLYSIS [None]
  - PANCREATIC MASS [None]
  - PERIPHERAL ARTERIAL OCCLUSIVE DISEASE [None]
  - PERIPHERAL ISCHAEMIA [None]
  - PERIPHERAL VASCULAR DISORDER [None]
  - PLEURAL EFFUSION [None]
  - RESPIRATORY DISTRESS [None]
  - SEPSIS [None]
  - SLEEP DISORDER [None]
  - TACHYCARDIA [None]
